FAERS Safety Report 9187306 (Version 2)
Quarter: 2013Q2

REPORT INFORMATION
  Report Type: Report from Study
  Country: GB (occurrence: GB)
  Receive Date: 20130325
  Receipt Date: 20130521
  Transmission Date: 20140414
  Serious: Yes (Hospitalization)
  Sender: FDA-Public Use
  Company Number: GB-ROCHE-1203907

PATIENT
  Age: 64 Year
  Sex: Female

DRUGS (3)
  1. RITUXIMAB [Suspect]
     Indication: RHEUMATOID ARTHRITIS
     Dosage: LAST DOSE PRIOR TO SAE WAS ON 27/MAR/2012
     Route: 065
     Dates: start: 20110705
  2. METHOTREXATE [Concomitant]
  3. SULPHASALAZINE [Concomitant]

REACTIONS (2)
  - Anastomotic leak [Recovered/Resolved]
  - Pneumonia [Unknown]
